FAERS Safety Report 13755455 (Version 2)
Quarter: 2017Q3

REPORT INFORMATION
  Report Type: Spontaneous
  Country: US (occurrence: US)
  Receive Date: 20170714
  Receipt Date: 20170906
  Transmission Date: 20171127
  Serious: Yes (Other)
  Sender: FDA-Public Use
  Company Number: US-AMGEN-USASP2017103509

PATIENT
  Sex: Female

DRUGS (12)
  1. GABAPENTIN. [Concomitant]
     Active Substance: GABAPENTIN
     Dosage: 300 MG, TID
     Route: 048
     Dates: start: 20170509
  2. ASPIRIN. [Concomitant]
     Active Substance: ASPIRIN
     Dosage: 325 MG, QD AS NEEDED
     Route: 048
     Dates: start: 20130411
  3. METHOTREXATE. [Suspect]
     Active Substance: METHOTREXATE
     Indication: PRODUCT USED FOR UNKNOWN INDICATION
     Dosage: UNK
     Route: 065
     Dates: start: 2013
  4. REMICADE [Suspect]
     Active Substance: INFLIXIMAB
     Indication: PRODUCT USED FOR UNKNOWN INDICATION
     Route: 065
  5. HUMIRA [Suspect]
     Active Substance: ADALIMUMAB
     Indication: PRODUCT USED FOR UNKNOWN INDICATION
     Dosage: 40 MG, QWK
     Route: 065
     Dates: start: 20160602, end: 20170509
  6. GABAPENTIN. [Concomitant]
     Active Substance: GABAPENTIN
     Indication: FIBROMYALGIA
     Dosage: 300 MG, QHS
     Route: 048
     Dates: start: 20170207
  7. ZOCOR [Concomitant]
     Active Substance: SIMVASTATIN
     Dosage: 1 TABLET UNK, QD IN THE EVENING
     Route: 048
  8. ENBREL [Suspect]
     Active Substance: ETANERCEPT
     Indication: RHEUMATOID ARTHRITIS
     Dosage: UNK
     Route: 065
     Dates: start: 2014
  9. METOPROLOL. [Concomitant]
     Active Substance: METOPROLOL
     Dosage: 50 MG, QD
     Dates: start: 20130411
  10. EFFEXOR [Concomitant]
     Active Substance: VENLAFAXINE HYDROCHLORIDE
     Dosage: 1 UNK, QD
     Route: 048
  11. LASIX [Concomitant]
     Active Substance: FUROSEMIDE
     Dosage: 40 MG, BID
     Route: 048
     Dates: start: 20130411
  12. MIRAPEX [Concomitant]
     Active Substance: PRAMIPEXOLE DIHYDROCHLORIDE
     Dosage: 1 TABLET UNK, QD
     Route: 048

REACTIONS (12)
  - Rheumatoid arthritis [Unknown]
  - Dry eye [Unknown]
  - Musculoskeletal stiffness [Unknown]
  - Drug ineffective [Unknown]
  - Aspiration joint [Unknown]
  - Myalgia [Unknown]
  - Fibromyalgia [Unknown]
  - Pain [Unknown]
  - Back pain [Unknown]
  - Hernia repair [Unknown]
  - Carpal tunnel syndrome [Unknown]
  - Muscular weakness [Unknown]

NARRATIVE: CASE EVENT DATE: 2016
